FAERS Safety Report 7071381-8 (Version None)
Quarter: 2010Q4

REPORT INFORMATION
  Report Type: 
  Country: None (occurrence: None)
  Receive Date: 20101029
  Receipt Date: 20091014
  Transmission Date: 20110411
  Serious: No
  Sender: FDA-Public Use
  Company Number: A0656612A

PATIENT
  Age: 45 Year
  Sex: Female

DRUGS (8)
  1. ADVAIR DISKUS 100/50 [Suspect]
     Indication: ASTHMA
     Dosage: 1PUFF PER DAY
     Route: 055
     Dates: start: 20020101
  2. ADVAIR DISKUS 100/50 [Suspect]
     Indication: PRODUCT USED FOR UNKNOWN INDICATION
     Dosage: 1PUFF PER DAY
     Route: 055
  3. NARDIL [Concomitant]
  4. ADDERALL 10 [Concomitant]
  5. LORAZEPAM [Concomitant]
  6. ORAP [Concomitant]
  7. CLONOPIN [Concomitant]
  8. PRILOSEC [Concomitant]

REACTIONS (11)
  - COUGH [None]
  - DRUG ADMINISTRATION ERROR [None]
  - DRUG INEFFECTIVE [None]
  - DYSPEPSIA [None]
  - FACIAL PAIN [None]
  - FATIGUE [None]
  - ODYNOPHAGIA [None]
  - OESOPHAGEAL CANDIDIASIS [None]
  - SINUS HEADACHE [None]
  - UNDERDOSE [None]
  - VAGINAL INFECTION [None]
